FAERS Safety Report 7451502-5 (Version None)
Quarter: 2011Q2

REPORT INFORMATION
  Report Type: 
  Country: None (occurrence: None)
  Receive Date: 20110425
  Receipt Date: 20110420
  Transmission Date: 20111010
  Serious: Yes (Hospitalization)
  Sender: FDA-Public Use
  Company Number: 2011SP017807

PATIENT
  Age: 41 Year
  Sex: Female

DRUGS (8)
  1. OVITRELLE (CHORIOGONADOTROPIN ALFA) [Suspect]
     Indication: PRODUCT USED FOR UNKNOWN INDICATION
     Dosage: SC
     Route: 058
     Dates: start: 20100418, end: 20100418
  2. OVITRELLE (CHORIOGONADOTROPIN ALFA) [Suspect]
     Indication: PRODUCT USED FOR UNKNOWN INDICATION
     Dosage: SC
     Route: 058
     Dates: start: 20101025, end: 20101025
  3. OVITRELLE (CHORIOGONADOTROPIN ALFA) [Suspect]
     Indication: PRODUCT USED FOR UNKNOWN INDICATION
     Dosage: SC
     Route: 058
     Dates: start: 20100324, end: 20100324
  4. OVITRELLE (CHORIOGONADOTROPIN ALFA) [Suspect]
     Indication: PRODUCT USED FOR UNKNOWN INDICATION
     Dosage: SC
     Route: 058
     Dates: start: 20100510, end: 20100510
  5. PUREGON 50 IU/0.5 ML SOLUCION INYECTABLE (FOLLITROPIN BETA /01348901/) [Suspect]
     Indication: PRODUCT USED FOR UNKNOWN INDICATION
     Dosage: 50 IU; ; SC; 50 IU;; SC; 50 IU;; SC; 75 IU;;SC
     Route: 058
     Dates: start: 20100409, end: 20100417
  6. PUREGON 50 IU/0.5 ML SOLUCION INYECTABLE (FOLLITROPIN BETA /01348901/) [Suspect]
     Indication: PRODUCT USED FOR UNKNOWN INDICATION
     Dosage: 50 IU; ; SC; 50 IU;; SC; 50 IU;; SC; 75 IU;;SC
     Route: 058
     Dates: start: 20100317, end: 20100323
  7. PUREGON 50 IU/0.5 ML SOLUCION INYECTABLE (FOLLITROPIN BETA /01348901/) [Suspect]
     Indication: PRODUCT USED FOR UNKNOWN INDICATION
     Dosage: 50 IU; ; SC; 50 IU;; SC; 50 IU;; SC; 75 IU;;SC
     Route: 058
     Dates: start: 20101002, end: 20101009
  8. PUREGON 50 IU/0.5 ML SOLUCION INYECTABLE (FOLLITROPIN BETA /01348901/) [Suspect]
     Indication: PRODUCT USED FOR UNKNOWN INDICATION
     Dosage: 50 IU; ; SC; 50 IU;; SC; 50 IU;; SC; 75 IU;;SC
     Route: 058
     Dates: start: 20100502, end: 20100509

REACTIONS (5)
  - TREATMENT FAILURE [None]
  - DRUG EXPOSURE BEFORE PREGNANCY [None]
  - BREAST CANCER METASTATIC [None]
  - PREGNANCY [None]
  - ABORTION INDUCED [None]
